FAERS Safety Report 16205109 (Version 1)
Quarter: 2019Q2

REPORT INFORMATION
  Report Type: Spontaneous
  Country: US (occurrence: US)
  Receive Date: 20190416
  Receipt Date: 20190416
  Transmission Date: 20190711
  Serious: No
  Sender: FDA-Public Use
  Company Number: US-009507513-1904USA002330

PATIENT
  Age: 27 Year
  Sex: Female
  Weight: 82.54 kg

DRUGS (1)
  1. NEXPLANON [Suspect]
     Active Substance: ETONOGESTREL
     Indication: CONTRACEPTION
     Dosage: UNK
     Route: 059
     Dates: start: 20190325, end: 20190401

REACTIONS (8)
  - Erythema [Recovering/Resolving]
  - Hypersensitivity [Unknown]
  - Implant site pruritus [Unknown]
  - Dizziness [Recovering/Resolving]
  - Swelling [Recovering/Resolving]
  - Implant site warmth [Unknown]
  - Pyrexia [Recovering/Resolving]
  - Implant site erythema [Unknown]

NARRATIVE: CASE EVENT DATE: 201903
